FAERS Safety Report 6813733-4 (Version None)
Quarter: 2010Q3

REPORT INFORMATION
  Report Type: 
  Country: None (occurrence: None)
  Receive Date: 20100701
  Receipt Date: 20100621
  Transmission Date: 20110219
  Serious: Yes (Other)
  Sender: FDA-Public Use
  Company Number: CH-ABBOTT-10P-151-0652460-00

PATIENT
  Age: 28 Year
  Sex: Female

DRUGS (13)
  1. AKINETON [Suspect]
     Indication: PRODUCT USED FOR UNKNOWN INDICATION
     Dates: start: 20080413, end: 20080413
  2. AKINETON [Suspect]
     Dates: start: 20080415, end: 20080415
  3. AKINETON [Suspect]
     Dates: start: 20080418, end: 20080418
  4. TRANXILIUM [Suspect]
     Indication: PRODUCT USED FOR UNKNOWN INDICATION
  5. LORAZEPAM [Suspect]
     Indication: PRODUCT USED FOR UNKNOWN INDICATION
  6. DALMADORM [Suspect]
     Indication: PRODUCT USED FOR UNKNOWN INDICATION
  7. TOLVON [Suspect]
     Indication: PRODUCT USED FOR UNKNOWN INDICATION
  8. PROMAZIN [Suspect]
     Indication: PRODUCT USED FOR UNKNOWN INDICATION
  9. CLOPIXOL ACUTARD [Suspect]
     Indication: PRODUCT USED FOR UNKNOWN INDICATION
  10. RISPERDAL [Suspect]
     Indication: PRODUCT USED FOR UNKNOWN INDICATION
  11. CANNABIS [Suspect]
     Indication: PRODUCT USED FOR UNKNOWN INDICATION
  12. ZOLPIDEM [Concomitant]
     Indication: PRODUCT USED FOR UNKNOWN INDICATION
  13. CETALLERG [Concomitant]
     Indication: PRODUCT USED FOR UNKNOWN INDICATION

REACTIONS (1)
  - ABORTION SPONTANEOUS [None]
